FAERS Safety Report 12234653 (Version 1)
Quarter: 2016Q2

REPORT INFORMATION
  Report Type: Report from Study
  Country: CA (occurrence: CA)
  Receive Date: 20160404
  Receipt Date: 20160404
  Transmission Date: 20160815
  Serious: Yes (Hospitalization, Other)
  Sender: FDA-Public Use
  Company Number: CA-AMGEN-CANSL2016039473

PATIENT
  Age: 71 Year
  Sex: Female

DRUGS (8)
  1. VITAMIN D                          /00107901/ [Concomitant]
     Active Substance: ERGOCALCIFEROL
  2. CORTISONE [Concomitant]
     Active Substance: CORTISONE\HYDROCORTISONE
     Dosage: 4 DF, QD
  3. LYRICA [Concomitant]
     Active Substance: PREGABALIN
     Dosage: 8 DF, QD
  4. PROLIA [Suspect]
     Active Substance: DENOSUMAB
     Indication: PRODUCT USED FOR UNKNOWN INDICATION
     Dosage: UNK
     Route: 065
     Dates: start: 20150915
  5. CALCIUM [Concomitant]
     Active Substance: CALCIUM
  6. PANTOLOC                           /01263204/ [Concomitant]
     Active Substance: PANTOPRAZOLE SODIUM
  7. METHOTREXATE [Concomitant]
     Active Substance: METHOTREXATE
     Dosage: 2 AND 12 TABS/DAY
  8. FOLIC ACID. [Concomitant]
     Active Substance: FOLIC ACID

REACTIONS (5)
  - Fatigue [Recovering/Resolving]
  - Colitis [Recovering/Resolving]
  - Vomiting [Recovering/Resolving]
  - Morphoea [Recovering/Resolving]
  - Loss of consciousness [Recovering/Resolving]
